FAERS Safety Report 13132533 (Version 1)
Quarter: 2017Q1

REPORT INFORMATION
  Report Type: Spontaneous
  Country: US (occurrence: US)
  Receive Date: 20170120
  Receipt Date: 20170120
  Transmission Date: 20170428
  Serious: No
  Sender: FDA-Public Use
  Company Number: US-TEVA-642508USA

PATIENT
  Sex: Female

DRUGS (2)
  1. CROMOLYN [Suspect]
     Active Substance: CROMOLYN
  2. ALBUTEROL SULFATE INHALATION SOLUTION [Suspect]
     Active Substance: ALBUTEROL SULFATE
     Route: 065

REACTIONS (3)
  - Product dosage form confusion [Unknown]
  - Product packaging confusion [Unknown]
  - Feeling abnormal [Unknown]
